FAERS Safety Report 9137731 (Version 2)
Quarter: 2013Q2

REPORT INFORMATION
  Report Type: Spontaneous
  Country: US (occurrence: US)
  Receive Date: 20130304
  Receipt Date: 20130417
  Transmission Date: 20140414
  Serious: Yes (Hospitalization, Other)
  Sender: FDA-Public Use
  Company Number: PHEH2013US005000

PATIENT
  Age: 51 Year
  Sex: Female
  Weight: 63.49 kg

DRUGS (10)
  1. GILENYA [Suspect]
     Route: 048
  2. ADDERALL [Concomitant]
  3. ZYRTEC [Concomitant]
  4. ESTRADIOL [Concomitant]
  5. PROZAC [Concomitant]
  6. SYNTHROID [Concomitant]
  7. INDERAL [Concomitant]
  8. ZANAFLEX [Concomitant]
  9. TOPAMAX [Concomitant]
  10. AMBIEN [Concomitant]

REACTIONS (1)
  - Atrial fibrillation [Recovered/Resolved]
